FAERS Safety Report 9973837 (Version 1)
Quarter: 2014Q1

REPORT INFORMATION
  Report Type: Spontaneous
  Country: US (occurrence: US)
  Receive Date: 20140306
  Receipt Date: 20140306
  Transmission Date: 20141002
  Serious: Yes (Other)
  Sender: FDA-Public Use
  Company Number: US-PFIZER INC-2014063180

PATIENT
  Age: 20 Year
  Sex: Male
  Weight: 81.6 kg

DRUGS (3)
  1. EFFEXOR [Suspect]
     Indication: DEPRESSION
     Dosage: 75 MG, DAILY
     Dates: start: 2013
  2. EFFEXOR XR [Suspect]
     Dosage: UNK
  3. 3, 4-METHYLENEDIOXY-N-METHYLAMPHETAMINE (MDMA)./ [Suspect]
     Indication: EUPHORIC MOOD
     Dosage: UNK, SINGLE
     Dates: start: 20140127, end: 20140127

REACTIONS (6)
  - Paranoia [Not Recovered/Not Resolved]
  - Hallucination [Recovered/Resolved]
  - Delusion [Unknown]
  - Anxiety [Not Recovered/Not Resolved]
  - Thinking abnormal [Unknown]
  - Burning sensation [Unknown]
